FAERS Safety Report 15445436 (Version 1)
Quarter: 2018Q3

REPORT INFORMATION
  Report Type: Spontaneous
  Country: JP (occurrence: JP)
  Receive Date: 20180928
  Receipt Date: 20180928
  Transmission Date: 20181010
  Serious: Yes (Hospitalization, Other)
  Sender: FDA-Public Use
  Company Number: JP-BAUSCH-BL-2018-026382

PATIENT
  Age: 51 Year
  Sex: Male

DRUGS (12)
  1. PROMETHAZINE [Concomitant]
     Active Substance: PROMETHAZINE\PROMETHAZINE HYDROCHLORIDE
  2. LORAZEPAM. [Suspect]
     Active Substance: LORAZEPAM
     Dosage: SINCE HE WAS 44 YEARS OLD
     Route: 065
  3. DULOXETINE. [Concomitant]
     Active Substance: DULOXETINE
     Indication: DEPRESSION
  4. PROMETHAZINE [Concomitant]
     Active Substance: PROMETHAZINE\PROMETHAZINE HYDROCHLORIDE
     Indication: DEPRESSION
     Dosage: SINCE HE WAS 44 YEARS OLD
  5. DULOXETINE. [Concomitant]
     Active Substance: DULOXETINE
     Dosage: SINCE HE WAS 44 YEARS OLD
  6. BROTIZOLAM [Concomitant]
     Active Substance: BROTIZOLAM
     Indication: DEPRESSION
  7. SULPIRIDE [Concomitant]
     Active Substance: SULPIRIDE
  8. BROTIZOLAM [Concomitant]
     Active Substance: BROTIZOLAM
     Dosage: SINCE HE WAS 44 YEARS OLD
  9. LORAZEPAM. [Suspect]
     Active Substance: LORAZEPAM
     Indication: DEPRESSION
     Route: 065
  10. ETIZOLAM [Concomitant]
     Active Substance: ETIZOLAM
     Dosage: SINCE HE WAS 44 YEARS OLD
  11. SULPIRIDE [Concomitant]
     Active Substance: SULPIRIDE
     Indication: DEPRESSION
     Dosage: SINCE HE WAS 44 YEARS OLD
  12. ETIZOLAM [Concomitant]
     Active Substance: ETIZOLAM
     Indication: DEPRESSION

REACTIONS (1)
  - Drug-induced liver injury [Recovered/Resolved]
